FAERS Safety Report 9812091 (Version 1)
Quarter: 2014Q1

REPORT INFORMATION
  Report Type: Spontaneous
  Country: FR (occurrence: FR)
  Receive Date: 20140111
  Receipt Date: 20140111
  Transmission Date: 20141002
  Serious: Yes (Hospitalization, Other)
  Sender: FDA-Public Use
  Company Number: FR-ASTRAZENECA-2014SE01084

PATIENT
  Age: 79 Year
  Sex: Male

DRUGS (8)
  1. INEXIUM [Suspect]
     Route: 048
     Dates: start: 2012
  2. STILNOX [Suspect]
     Route: 048
  3. CARDENSIEL [Suspect]
     Route: 048
     Dates: start: 2004
  4. LASILIX [Suspect]
     Route: 048
     Dates: start: 2004
  5. CORDARONE [Suspect]
     Route: 048
     Dates: start: 2004
  6. XATRAL SR [Suspect]
     Route: 048
     Dates: start: 2012
  7. PREVISCAN [Suspect]
     Route: 048
     Dates: start: 2004
  8. SIMVASTATINE [Suspect]
     Route: 048
     Dates: start: 2004

REACTIONS (11)
  - Retroperitoneal fibrosis [Not Recovered/Not Resolved]
  - Rectal haemorrhage [Unknown]
  - Renal failure acute [Unknown]
  - Deep vein thrombosis [Unknown]
  - Asthenia [Unknown]
  - Decreased appetite [Unknown]
  - Dysphagia [Unknown]
  - Back pain [Unknown]
  - Anaemia [Unknown]
  - Pyelocaliectasis [Unknown]
  - Constipation [Unknown]
